FAERS Safety Report 21030187 (Version 1)
Quarter: 2022Q3

REPORT INFORMATION
  Report Type: Spontaneous
  Country: US (occurrence: None)
  Receive Date: 20220701
  Receipt Date: 20220701
  Transmission Date: 20221026
  Serious: No
  Sender: FDA-Public Use
  Company Number: US-ROCHE-2994290

PATIENT
  Sex: Female

DRUGS (5)
  1. ACTEMRA [Suspect]
     Active Substance: TOCILIZUMAB
     Indication: Giant cell arteritis
     Route: 058
     Dates: start: 20211130
  2. ACTEMRA [Suspect]
     Active Substance: TOCILIZUMAB
  3. PREDNISOLONE [Concomitant]
     Active Substance: PREDNISOLONE
  4. OFLOXACIN [Concomitant]
     Active Substance: OFLOXACIN
  5. PREDNISONE [Concomitant]
     Active Substance: PREDNISONE

REACTIONS (2)
  - Nausea [Unknown]
  - Abdominal discomfort [Unknown]
